FAERS Safety Report 7099434-9 (Version None)
Quarter: 2010Q4

REPORT INFORMATION
  Report Type: 
  Country: None (occurrence: None)
  Receive Date: 20101112
  Receipt Date: 20080917
  Transmission Date: 20110411
  Serious: No
  Sender: FDA-Public Use
  Company Number: US-KINGPHARMUSA00001-K200801096

PATIENT
  Sex: Female

DRUGS (3)
  1. LEVOXYL [Suspect]
     Dosage: 87.5 MCG, QD
  2. LEVOXYL [Suspect]
     Dosage: 125 MCG, QD
  3. LEVOXYL [Suspect]
     Dosage: 100 MCG, QD
     Route: 048

REACTIONS (2)
  - PRURITUS [None]
  - THYROID FUNCTION TEST ABNORMAL [None]
